FAERS Safety Report 4541154-6 (Version None)
Quarter: 2004Q4

REPORT INFORMATION
  Report Type: 
  Country: None (occurrence: None)
  Receive Date: 20041227
  Receipt Date: 20041220
  Transmission Date: 20050328
  Serious: Yes (Hospitalization)
  Sender: FDA-Public Use
  Company Number: HQWYE788107DEC04

PATIENT
  Age: 28 Year
  Sex: Female

DRUGS (7)
  1. INDERAL               (PROPANOLOL HYDROCHLORIDE) [Suspect]
     Indication: BASEDOW'S DISEASE
     Dosage: 30 MG 1X PER 1 DAY, ORAL
     Route: 048
     Dates: start: 20041107, end: 20041115
  2. MERCAZOLE (THIAMAZOLE) [Suspect]
     Indication: BASEDOW'S DISEASE
     Dosage: 80 MG 1X PER 1 DAY, ORAL
     Route: 048
     Dates: start: 20041015, end: 20041105
  3. MEROPEN   (MEROPENEM ) [Suspect]
     Indication: AGRANULOCYTOSIS
     Dosage: 1 G 1X PER 1 DAY, INTRAVENOUS
     Route: 042
     Dates: start: 20041107, end: 20041116
  4. METOPROLOL TARTRATE [Suspect]
     Indication: BASEDOW'S DISEASE
     Dosage: 60 MG 1X PER 1 DAY, ORAL
     Route: 048
     Dates: start: 20041115, end: 20041105
  5. POTASSIUM IODIDE        (POTASSIUM IODIDE) [Concomitant]
  6. FLUCONAZOLE [Concomitant]
  7. FAMOTIDINE [Concomitant]

REACTIONS (6)
  - AGRANULOCYTOSIS [None]
  - INFECTION [None]
  - PANCYTOPENIA [None]
  - PHARYNGOLARYNGEAL PAIN [None]
  - PYREXIA [None]
  - RASH [None]
